FAERS Safety Report 9841416 (Version 1)
Quarter: 2014Q1

REPORT INFORMATION
  Report Type: Report from Study
  Country: CA (occurrence: CA)
  Receive Date: 20140124
  Receipt Date: 20140124
  Transmission Date: 20141002
  Serious: Yes (Other)
  Sender: FDA-Public Use
  Company Number: CA-JNJFOC-20140113996

PATIENT
  Age: 55 Year
  Sex: Male
  Weight: 99.8 kg

DRUGS (5)
  1. REMICADE [Suspect]
     Indication: CROHN^S DISEASE
     Route: 042
     Dates: start: 20080812
  2. REMICADE [Suspect]
     Indication: CROHN^S DISEASE
     Dosage: #68 INFUSION
     Route: 042
     Dates: start: 20140117
  3. PEG [Concomitant]
     Route: 065
  4. ACETAMINOPHEN [Concomitant]
     Indication: PREMEDICATION
     Route: 048
  5. AERIUS [Concomitant]
     Indication: PREMEDICATION
     Route: 048

REACTIONS (2)
  - Nephrolithiasis [Not Recovered/Not Resolved]
  - Chromaturia [Not Recovered/Not Resolved]
